FAERS Safety Report 9460565 (Version 1)
Quarter: 2013Q3

REPORT INFORMATION
  Report Type: Spontaneous
  Country: FR (occurrence: FR)
  Receive Date: 20130815
  Receipt Date: 20130815
  Transmission Date: 20140515
  Serious: Yes (Hospitalization)
  Sender: FDA-Public Use
  Company Number: FR-WATSON-2013-14689

PATIENT
  Age: 66 Year
  Sex: Female

DRUGS (4)
  1. PRAVASTATIN SODIUM (UNKNOWN) [Suspect]
     Indication: PRODUCT USED FOR UNKNOWN INDICATION
     Dosage: 20 MG, DAILY
     Route: 048
     Dates: start: 20111104, end: 20120108
  2. MIANSERIN [Suspect]
     Indication: PRODUCT USED FOR UNKNOWN INDICATION
     Dosage: 30 MG, DAILY
     Route: 065
     Dates: start: 20111101, end: 20120103
  3. LAMICTAL [Suspect]
     Indication: EPILEPSY
     Dosage: 25 MG, DAILY
     Route: 048
     Dates: start: 20111127, end: 20111127
  4. NEULEPTIL [Suspect]
     Indication: PRODUCT USED FOR UNKNOWN INDICATION
     Dosage: 10 MG, BID
     Route: 048
     Dates: start: 20111109, end: 20120105

REACTIONS (8)
  - Drug reaction with eosinophilia and systemic symptoms [Recovered/Resolved]
  - Eosinophilia [Recovered/Resolved]
  - Lymphocytosis [Recovered/Resolved]
  - Hepatocellular injury [Recovered/Resolved]
  - Cholestasis [Recovered/Resolved]
  - Rash morbilliform [Recovered/Resolved]
  - Face oedema [Recovered/Resolved]
  - Hyperthermia [Recovered/Resolved]
